FAERS Safety Report 13384861 (Version 1)
Quarter: 2017Q1

REPORT INFORMATION
  Report Type: Spontaneous
  Country: US (occurrence: US)
  Receive Date: 20170329
  Receipt Date: 20170329
  Transmission Date: 20170429
  Serious: No
  Sender: FDA-Public Use
  Company Number: US-ELI_LILLY_AND_COMPANY-US201607006147

PATIENT
  Sex: Male

DRUGS (2)
  1. CYMBALTA [Suspect]
     Active Substance: DULOXETINE HYDROCHLORIDE
     Indication: MAJOR DEPRESSION
     Dosage: 30 MG, QD
     Route: 065
     Dates: start: 20070705
  2. CYMBALTA [Suspect]
     Active Substance: DULOXETINE HYDROCHLORIDE
     Indication: ANXIETY DISORDER
     Dosage: 20 MG, QD
     Route: 065
     Dates: start: 20070823

REACTIONS (11)
  - Paraesthesia [Unknown]
  - Nausea [Unknown]
  - Hyperhidrosis [Unknown]
  - Hypoaesthesia [Unknown]
  - Fatigue [Unknown]
  - Dizziness [Unknown]
  - Confusional state [Unknown]
  - Vertigo [Unknown]
  - Diarrhoea [Unknown]
  - Drug withdrawal syndrome [Unknown]
  - Irritability [Unknown]
